FAERS Safety Report 25219657 (Version 2)
Quarter: 2025Q2

REPORT INFORMATION
  Report Type: Report from Study
  Country: CA (occurrence: CA)
  Receive Date: 20250421
  Receipt Date: 20250508
  Transmission Date: 20250717
  Serious: Yes (Other)
  Sender: TAKEDA
  Company Number: CA-TAKEDA-2024TUS087415

PATIENT
  Sex: Male

DRUGS (7)
  1. VEDOLIZUMAB [Suspect]
     Active Substance: VEDOLIZUMAB
     Indication: Crohn^s disease
  2. VEDOLIZUMAB [Suspect]
     Active Substance: VEDOLIZUMAB
     Indication: Crohn^s disease
     Dosage: 108 MILLIGRAM, Q2WEEKS
     Dates: start: 20241122
  3. STELARA [Concomitant]
     Active Substance: USTEKINUMAB
  4. HERBALS [Concomitant]
     Active Substance: HERBALS
  5. ASIAN GINSENG [Concomitant]
     Active Substance: ASIAN GINSENG
  6. VITAMIN D NOS [Concomitant]
     Active Substance: CHOLECALCIFEROL\ERGOCALCIFEROL
  7. CALCIUM [Concomitant]
     Active Substance: CALCIUM

REACTIONS (5)
  - Crohn^s disease [Unknown]
  - Weight decreased [Unknown]
  - Drug ineffective [Unknown]
  - Pain [Unknown]
  - Fatigue [Not Recovered/Not Resolved]
